FAERS Safety Report 6448699-2 (Version None)
Quarter: 2009Q4

REPORT INFORMATION
  Report Type: 
  Country: None (occurrence: None)
  Receive Date: 20091120
  Receipt Date: 20091009
  Transmission Date: 20100525
  Serious: No
  Sender: FDA-Public Use
  Company Number: US-KINGPHARMUSA00001-K200901266

PATIENT
  Sex: Male

DRUGS (2)
  1. FLECTOR [Suspect]
     Indication: PAIN IN EXTREMITY
     Dosage: UNK PATCH, UNK
     Route: 061
     Dates: start: 20090901, end: 20090101
  2. CELEBREX [Concomitant]
     Dosage: 200 MG, UNK

REACTIONS (3)
  - FORMICATION [None]
  - INFLUENZA LIKE ILLNESS [None]
  - WEIGHT INCREASED [None]
